FAERS Safety Report 10331410 (Version 1)
Quarter: 2014Q3

REPORT INFORMATION
  Report Type: Spontaneous
  Country: US (occurrence: None)
  Receive Date: 20140718
  Receipt Date: 20140718
  Transmission Date: 20150326
  Serious: Yes (Other)
  Sender: FDA-Public Use
  Company Number: 2014SA093837

PATIENT
  Age: 49 Year
  Sex: Male

DRUGS (1)
  1. UNISOM NIGHT TIME SLEEP-AID [Suspect]
     Active Substance: DIPHENHYDRAMINE HYDROCHLORIDE

REACTIONS (1)
  - Ophthalmoplegia [None]

NARRATIVE: CASE EVENT DATE: 20140705
